FAERS Safety Report 6920198-0 (Version None)
Quarter: 2010Q3

REPORT INFORMATION
  Report Type: 
  Country: None (occurrence: None)
  Receive Date: 20100809
  Receipt Date: 20100804
  Transmission Date: 20110219
  Serious: Yes (Death, Hospitalization)
  Sender: FDA-Public Use
  Company Number: 2010SP042347

PATIENT
  Age: 66 Year
  Sex: Male

DRUGS (9)
  1. TEMODAL [Suspect]
     Indication: GLIOBLASTOMA
     Dosage: 50 MG/M2
     Dates: start: 20050224, end: 20050414
  2. INDOMETHACIN [Suspect]
     Indication: GLIOBLASTOMA
     Dosage: 25 MG;BID
     Dates: start: 20050224, end: 20050405
  3. ASPIRIN [Concomitant]
  4. DEXAMETHASONE [Concomitant]
  5. ESOMEPRAZOLE MAGNESIUM [Concomitant]
  6. ATORVASTATIN [Concomitant]
  7. AMLODIPINE [Concomitant]
  8. FOSINOPRIL SODIUM [Concomitant]
  9. TRIMETHOPRIM/SULFAMETHOXAZOL [Concomitant]

REACTIONS (1)
  - TUMOUR HAEMORRHAGE [None]
